FAERS Safety Report 10944638 (Version 1)
Quarter: 2015Q1

REPORT INFORMATION
  Report Type: Spontaneous
  Country: FR (occurrence: None)
  Receive Date: 20150318
  Receipt Date: 20150318
  Transmission Date: 20150721
  Serious: No
  Sender: FDA-Public Use
  Company Number: FR-2015-0830

PATIENT
  Age: 32 Year
  Sex: Female

DRUGS (3)
  1. CAELYX [Suspect]
     Active Substance: DOXORUBICIN HYDROCHLORIDE
     Indication: HODGKIN^S DISEASE
     Dosage: FROM 14H10
     Route: 042
     Dates: start: 20150218
  2. GEMCITABINE ACCORD [Suspect]
     Active Substance: GEMCITABINE HYDROCHLORIDE
     Indication: HODGKIN^S DISEASE
     Dosage: FROM 13:10 TO 14:10
     Route: 042
     Dates: start: 20150218
  3. NAVELBINE [Suspect]
     Active Substance: VINORELBINE TARTRATE
     Indication: HODGKIN^S DISEASE
     Dosage: FROM 12:50 TO 13:10
     Route: 042
     Dates: start: 20150218

REACTIONS (6)
  - Dyspnoea [None]
  - Pruritus [None]
  - Hypersensitivity [None]
  - Hypotension [None]
  - Nausea [None]
  - Vertigo [None]

NARRATIVE: CASE EVENT DATE: 20150218
